FAERS Safety Report 16412532 (Version 1)
Quarter: 2019Q2

REPORT INFORMATION
  Report Type: Other
  Country: None (occurrence: DE)
  Receive Date: 20190610
  Receipt Date: 20190610
  Transmission Date: 20190711
  Serious: Yes (Other)
  Sender: FDA-Public Use
  Company Number: DE-LABORATOIRE HRA PHARMA-2068052

PATIENT
  Age: 38 Year
  Sex: Female
  Weight: 59 kg

DRUGS (3)
  1. ELLA [Suspect]
     Active Substance: ULIPRISTAL ACETATE
     Indication: POST COITAL CONTRACEPTION
     Route: 048
     Dates: start: 20160718, end: 20160718
  2. INSULIN [Concomitant]
     Active Substance: INSULIN NOS
  3. ACETYLSALICYLIC ACID [Concomitant]
     Active Substance: ASPIRIN
     Dates: start: 20160930

REACTIONS (4)
  - Unintended pregnancy [None]
  - Premature delivery [None]
  - Ultrasound uterus abnormal [None]
  - Drug ineffective [None]

NARRATIVE: CASE EVENT DATE: 20161125
